FAERS Safety Report 17845105 (Version 2)
Quarter: 2020Q3

REPORT INFORMATION
  Report Type: Report from Study
  Country: None (occurrence: US)
  Receive Date: 20200601
  Receipt Date: 20200721
  Transmission Date: 20201103
  Serious: Yes (Other)
  Sender: FDA-Public Use
  Company Number: US-ABBVIE-20K-163-3425476-00

PATIENT
  Sex: Female
  Weight: 90.8 kg

DRUGS (5)
  1. CAMILA [Concomitant]
     Active Substance: NORETHINDRONE
     Indication: CONTRACEPTION
     Dosage: PILL
  2. HUMIRA [Suspect]
     Active Substance: ADALIMUMAB
     Indication: HIDRADENITIS
     Route: 058
     Dates: start: 202001, end: 202001
  3. HUMIRA [Suspect]
     Active Substance: ADALIMUMAB
     Indication: RHEUMATOID ARTHRITIS
     Route: 058
     Dates: start: 20200630
  4. FOLIC ACID. [Concomitant]
     Active Substance: FOLIC ACID
     Indication: RHEUMATOID ARTHRITIS
  5. NAPROXEN. [Concomitant]
     Active Substance: NAPROXEN
     Indication: RHEUMATOID ARTHRITIS

REACTIONS (8)
  - Post procedural discharge [Recovering/Resolving]
  - Procedural pain [Recovered/Resolved]
  - Impaired healing [Not Recovered/Not Resolved]
  - Squamous cell carcinoma of skin [Recovering/Resolving]
  - Lymphadenitis [Recovering/Resolving]
  - Abdominal pain upper [Not Recovered/Not Resolved]
  - Swelling [Recovering/Resolving]
  - Stomach mass [Not Recovered/Not Resolved]
